FAERS Safety Report 19631704 (Version 1)
Quarter: 2021Q3

REPORT INFORMATION
  Report Type: Spontaneous
  Country: US (occurrence: US)
  Receive Date: 20210728
  Receipt Date: 20210728
  Transmission Date: 20211014
  Serious: No
  Sender: FDA-Public Use
  Company Number: US-ROCHE-2653733

PATIENT
  Sex: Female

DRUGS (3)
  1. XELODA [Suspect]
     Active Substance: CAPECITABINE
     Indication: BREAST CANCER FEMALE
     Dosage: BID; BID FOR 14 DAYS WITH 7 DAYS OFF
     Route: 048
     Dates: start: 20200708
  2. K?DUR [Concomitant]
     Active Substance: POTASSIUM CHLORIDE
     Dosage: 20 MEQ TWICE DAILY WITH FOOD
  3. TUCATINIB [Suspect]
     Active Substance: TUCATINIB
     Indication: BREAST CANCER FEMALE
     Dosage: AT 10:00 AM AND PM WITH FOOD
     Route: 065
     Dates: start: 20200708

REACTIONS (9)
  - Fatigue [Unknown]
  - Diarrhoea [Unknown]
  - Vomiting [Unknown]
  - Sluggishness [Unknown]
  - Feeling abnormal [Unknown]
  - Appetite disorder [Recovered/Resolved]
  - Computerised tomogram abnormal [Unknown]
  - Crying [Unknown]
  - Decreased appetite [Recovered/Resolved]

NARRATIVE: CASE EVENT DATE: 20200708
